FAERS Safety Report 10085178 (Version 5)
Quarter: 2014Q2

REPORT INFORMATION
  Report Type: Spontaneous
  Country: US (occurrence: US)
  Receive Date: 20140417
  Receipt Date: 20140626
  Transmission Date: 20141212
  Serious: Yes (Other)
  Sender: FDA-Public Use
  Company Number: US-TEVA-475051USA

PATIENT
  Age: 47 Year
  Sex: Female
  Weight: 74.91 kg

DRUGS (1)
  1. PARAGARD 380A [Suspect]
     Indication: CONTRACEPTION
     Route: 015
     Dates: start: 20060413, end: 20140404

REACTIONS (6)
  - Device breakage [Not Recovered/Not Resolved]
  - Amenorrhoea [Not Recovered/Not Resolved]
  - Tremor [Unknown]
  - Tobacco user [Unknown]
  - Frustration [Unknown]
  - Medical device complication [Recovered/Resolved]
